FAERS Safety Report 5693656-7 (Version None)
Quarter: 2008Q2

REPORT INFORMATION
  Report Type: 
  Country: None (occurrence: None)
  Receive Date: 20080403
  Receipt Date: 20080326
  Transmission Date: 20081010
  Serious: Yes (Hospitalization)
  Sender: FDA-Public Use
  Company Number: JP-MERCK-0803USA04802

PATIENT
  Age: 66 Year
  Sex: Male

DRUGS (1)
  1. PROPECIA [Suspect]
     Route: 048
     Dates: start: 20070101

REACTIONS (2)
  - CARDIAC DISORDER [None]
  - WRONG TECHNIQUE IN DRUG USAGE PROCESS [None]
